FAERS Safety Report 5030698-9 (Version None)
Quarter: 2006Q2

REPORT INFORMATION
  Report Type: 
  Country: None (occurrence: None)
  Receive Date: 20060615
  Receipt Date: 20060602
  Transmission Date: 20061013
  Serious: Yes (Other)
  Sender: FDA-Public Use
  Company Number: 2006073978

PATIENT
  Age: 96 Year
  Sex: Female
  Weight: 49 kg

DRUGS (1)
  1. PHENYTOIN [Suspect]
     Indication: CONVULSION
     Dosage: 1 IN 1 D, ORAL
     Route: 048
     Dates: start: 19851118, end: 19851201

REACTIONS (2)
  - COMA [None]
  - PYREXIA [None]
